FAERS Safety Report 23919474 (Version 1)
Quarter: 2024Q2

REPORT INFORMATION
  Report Type: Spontaneous
  Country: US (occurrence: US)
  Receive Date: 20240530
  Receipt Date: 20240530
  Transmission Date: 20240716
  Serious: Yes (Other)
  Sender: FDA-Public Use
  Company Number: US-PFIZER INC-202400180199

PATIENT
  Age: 46 Year
  Sex: Female
  Weight: 90.72 kg

DRUGS (2)
  1. XELJANZ XR [Suspect]
     Active Substance: TOFACITINIB CITRATE
     Indication: Psoriatic arthropathy
     Dosage: 11 MG, 1X/DAY
     Dates: start: 20240524
  2. SHINGRIX [Suspect]
     Active Substance: RECOMBINANT VARICELLA ZOSTER VIRUS (VZV) GLYCOPROTEIN E
     Indication: Immunisation
     Dosage: DOSE NUMBER UNKNOWN, SINGLE
     Dates: start: 20240522, end: 20240522

REACTIONS (8)
  - Uveitis [Unknown]
  - Eye pain [Not Recovered/Not Resolved]
  - Crying [Unknown]
  - Hyperaesthesia eye [Unknown]
  - Conjunctivitis [Unknown]
  - Hangover [Unknown]
  - Headache [Unknown]
  - Facial pain [Unknown]

NARRATIVE: CASE EVENT DATE: 20240525
